FAERS Safety Report 9904239 (Version 1)
Quarter: 2014Q1

REPORT INFORMATION
  Report Type: Spontaneous
  Country: US (occurrence: US)
  Receive Date: 20140218
  Receipt Date: 20140218
  Transmission Date: 20141002
  Serious: Yes (Other)
  Sender: FDA-Public Use
  Company Number: US-ASTRAZENECA-2014SE09636

PATIENT
  Age: 717 Month
  Sex: Male
  Weight: 93 kg

DRUGS (3)
  1. CRESTOR [Suspect]
     Indication: BLOOD CHOLESTEROL INCREASED
     Route: 048
     Dates: start: 2010
  2. LOSARTAN HCTZ [Concomitant]
     Indication: HYPERTENSION
     Dosage: 100MG/25MG DAILY
  3. MEDICATIONS FOR HIGH BLOOD PRESSURE [Concomitant]
     Dates: start: 1999

REACTIONS (3)
  - Colon cancer [Not Recovered/Not Resolved]
  - Weight increased [Recovered/Resolved]
  - Vomiting [Recovered/Resolved]
